FAERS Safety Report 8406199-4 (Version None)
Quarter: 2012Q2

REPORT INFORMATION
  Report Type: 
  Country: None (occurrence: None)
  Receive Date: 20120323
  Receipt Date: 20110519
  Transmission Date: 20120825
  Serious: Yes (Other)
  Sender: FDA-Public Use
  Company Number: 163-21880-11052588

PATIENT
  Age: 68 Year
  Sex: Male
  Weight: 86.1834 kg

DRUGS (12)
  1. ALLEGRA [Concomitant]
  2. NEXIUM [Concomitant]
  3. CELEBREX [Concomitant]
  4. ZOMETA [Concomitant]
  5. CALCIUM CARBONATE [Concomitant]
  6. REVLIMID [Suspect]
     Indication: MULTIPLE MYELOMA
     Dosage: 10 MG, QD X21, PO
     Route: 048
     Dates: start: 20100828
  7. DECADRON [Concomitant]
  8. NIACIN [Concomitant]
  9. SIMVASTATIN [Concomitant]
  10. METHADONE HCL [Concomitant]
  11. MUCINEX [Concomitant]
  12. M.V.I. [Concomitant]

REACTIONS (2)
  - NEUROPATHY PERIPHERAL [None]
  - MUSCLE TIGHTNESS [None]
